FAERS Safety Report 4634274-9 (Version None)
Quarter: 2005Q2

REPORT INFORMATION
  Report Type: 
  Country: None (occurrence: None)
  Receive Date: 20050411
  Receipt Date: 20050329
  Transmission Date: 20051028
  Serious: Yes (Hospitalization)
  Sender: FDA-Public Use
  Company Number: 2005034562

PATIENT
  Age: 61 Year
  Sex: Female

DRUGS (12)
  1. VIAGRA [Suspect]
     Indication: PULMONARY HYPERTENSION
     Dosage: 100 MG (50 MG, 2 IN 1 D), ORAL
     Route: 048
     Dates: start: 20041227, end: 20041228
  2. LEVOTHYROXINE SODIUM [Concomitant]
  3. AMITRIPTYLINE HCL [Concomitant]
  4. CODEINE PHOSPHATE AND ACETAMINOPHEN [Concomitant]
  5. FUROSEMIDE [Concomitant]
  6. CIPROFIBRATE (CIPROFIBRATE) [Concomitant]
  7. TEMAZEPAM [Concomitant]
  8. MELOXICAM [Concomitant]
  9. NEOMYCIN [Concomitant]
  10. DIAZEPAM [Concomitant]
  11. OXYCODONE HCL [Concomitant]
  12. EPOPROSTENOL SODIUM (EPOPROSTENOL SODIUM) [Concomitant]

REACTIONS (16)
  - ABDOMINAL PAIN [None]
  - BACK PAIN [None]
  - BLOOD CHOLINESTERASE DECREASED [None]
  - BLOOD POTASSIUM DECREASED [None]
  - BLOOD SODIUM INCREASED [None]
  - BUNDLE BRANCH BLOCK RIGHT [None]
  - C-REACTIVE PROTEIN INCREASED [None]
  - CYANOSIS [None]
  - ELECTROCARDIOGRAM ABNORMAL [None]
  - GAMMA-GLUTAMYLTRANSFERASE INCREASED [None]
  - HAEMOGLOBIN DECREASED [None]
  - LABORATORY TEST ABNORMAL [None]
  - PAIN IN EXTREMITY [None]
  - PLATELET COUNT DECREASED [None]
  - RESTLESSNESS [None]
  - URINARY RETENTION [None]
